FAERS Safety Report 4673043-0 (Version None)
Quarter: 2005Q2

REPORT INFORMATION
  Report Type: 
  Country: None (occurrence: None)
  Receive Date: 20050525
  Receipt Date: 20050513
  Transmission Date: 20051028
  Serious: Yes (Other)
  Sender: FDA-Public Use
  Company Number: BE-JNJFOC-20050503483

PATIENT
  Sex: Female

DRUGS (1)
  1. INFLIXIMAB [Suspect]
     Indication: RHEUMATOID ARTHRITIS
     Dosage: THE PATIENT WAS TREATED ON WEEK 0, 2 6 AND THEN EVERY 8 WEEKS.
     Route: 042

REACTIONS (1)
  - LUNG NEOPLASM MALIGNANT [None]
